FAERS Safety Report 7985184-0 (Version None)
Quarter: 2011Q4

REPORT INFORMATION
  Report Type: 
  Country: None (occurrence: None)
  Receive Date: 20111216
  Receipt Date: 20111205
  Transmission Date: 20120403
  Serious: Yes (Other)
  Sender: FDA-Public Use
  Company Number: PHHY2011JP93360

PATIENT
  Sex: Male

DRUGS (6)
  1. ATELEC [Concomitant]
     Dosage: 10 MG, UNK
     Route: 048
     Dates: start: 20110205
  2. ASPIRIN [Concomitant]
     Dosage: 100 MG, UNK
     Route: 048
     Dates: start: 20110205
  3. MICAMLO [Concomitant]
     Dosage: 1 DF, UNK
     Route: 048
     Dates: start: 20110205
  4. AFINITOR [Suspect]
     Indication: METASTATIC RENAL CELL CARCINOMA
     Dosage: 10 MG, DAILY
     Route: 048
     Dates: start: 20110312, end: 20110409
  5. PLAVIX [Concomitant]
     Dosage: 75 MG, UNK
     Route: 048
     Dates: start: 20110205
  6. ALLOPURINOL [Concomitant]
     Dosage: 100 MG, UNK
     Route: 048
     Dates: start: 20110205

REACTIONS (7)
  - BLOOD CREATININE INCREASED [None]
  - NEOPLASM PROGRESSION [None]
  - ASPARTATE AMINOTRANSFERASE INCREASED [None]
  - ALANINE AMINOTRANSFERASE INCREASED [None]
  - NEPHROSCLEROSIS [None]
  - NEOPLASM MALIGNANT [None]
  - GAMMA-GLUTAMYLTRANSFERASE INCREASED [None]
